FAERS Safety Report 10186211 (Version 1)
Quarter: 2014Q2

REPORT INFORMATION
  Report Type: Report from Study
  Country: US (occurrence: US)
  Receive Date: 20140521
  Receipt Date: 20140521
  Transmission Date: 20141212
  Serious: Yes (Other)
  Sender: FDA-Public Use
  Company Number: US-ABBVIE-14P-163-1236547-00

PATIENT
  Age: 61 Year
  Sex: Male
  Weight: 63.56 kg

DRUGS (3)
  1. HUMIRA [Suspect]
     Indication: CROHN^S DISEASE
     Dates: start: 2011
  2. AZATHIOPRINE [Concomitant]
     Indication: CROHN^S DISEASE
  3. MELOXICAM [Concomitant]
     Indication: BACK PAIN

REACTIONS (3)
  - Osteoarthritis [Recovering/Resolving]
  - Monarthritis [Recovering/Resolving]
  - Hypertension [Not Recovered/Not Resolved]
